FAERS Safety Report 21568279 (Version 6)
Quarter: 2023Q4

REPORT INFORMATION
  Report Type: Spontaneous
  Country: US (occurrence: US)
  Receive Date: 20221108
  Receipt Date: 20231121
  Transmission Date: 20240110
  Serious: Yes (Other)
  Sender: FDA-Public Use
  Company Number: US-PFIZER INC-2020475852

PATIENT
  Age: 71 Year
  Sex: Female
  Weight: 81.65 kg

DRUGS (1)
  1. TOVIAZ [Suspect]
     Active Substance: FESOTERODINE FUMARATE
     Indication: Hypertonic bladder
     Dosage: 8 MG, 1X/DAY (PILL ONCE A DAY)

REACTIONS (5)
  - Cataract [Unknown]
  - Therapeutic product effect incomplete [Unknown]
  - Dysphonia [Unknown]
  - Hair growth abnormal [Not Recovered/Not Resolved]
  - Neck pain [Unknown]
